FAERS Safety Report 4662499-5 (Version None)
Quarter: 2005Q2

REPORT INFORMATION
  Report Type: 
  Country: None (occurrence: None)
  Receive Date: 20050513
  Receipt Date: 20050513
  Transmission Date: 20051028
  Serious: Yes (Other)
  Sender: FDA-Public Use
  Company Number: None

PATIENT
  Age: 46 Year
  Sex: Female
  Weight: 67.586 kg

DRUGS (1)
  1. BUPROPRION  (BUDEPRION)     150 MG SR    UNK [Suspect]
     Indication: ANXIETY
     Dosage: 1 PER DAY    ORAL
     Route: 048
     Dates: start: 20040404, end: 20050418

REACTIONS (11)
  - AMNESIA [None]
  - ARTHRALGIA [None]
  - DRUG INEFFECTIVE [None]
  - FATIGUE [None]
  - FEELING COLD [None]
  - FLUID RETENTION [None]
  - HEADACHE [None]
  - PAIN IN EXTREMITY [None]
  - SPEECH DISORDER [None]
  - VISION BLURRED [None]
  - WEIGHT INCREASED [None]
